FAERS Safety Report 11653769 (Version 1)
Quarter: 2015Q4

REPORT INFORMATION
  Report Type: Spontaneous
  Country: US (occurrence: US)
  Receive Date: 20151022
  Receipt Date: 20151022
  Transmission Date: 20160304
  Serious: Yes (Other)
  Sender: FDA-Public Use
  Company Number: US-MYLANLABS-2015M1035643

PATIENT

DRUGS (6)
  1. OXYCODONE [Suspect]
     Active Substance: OXYCODONE
     Dosage: 15 MG, UNK
  2. OXYMORPHONE [Suspect]
     Active Substance: OXYMORPHONE
     Dosage: UNK
  3. XANAX [Suspect]
     Active Substance: ALPRAZOLAM
     Indication: PANIC ATTACK
  4. FENTANYL. [Suspect]
     Active Substance: FENTANYL
     Dosage: UNK
  5. XANAX [Suspect]
     Active Substance: ALPRAZOLAM
     Indication: ANXIETY
     Dosage: 4 MG, UNK
  6. DILAUDID [Suspect]
     Active Substance: HYDROMORPHONE HYDROCHLORIDE
     Dosage: UNK
     Route: 042

REACTIONS (7)
  - Panic attack [Unknown]
  - Heart rate increased [Unknown]
  - Anxiety [Unknown]
  - Hyperhidrosis [Unknown]
  - Drug dependence [Unknown]
  - Irritability [Unknown]
  - Unevaluable event [Unknown]
